FAERS Safety Report 5912089-9 (Version None)
Quarter: 2008Q4

REPORT INFORMATION
  Report Type: 
  Country: None (occurrence: None)
  Receive Date: 20081008
  Receipt Date: 20081006
  Transmission Date: 20090506
  Serious: Yes (Hospitalization)
  Sender: FDA-Public Use
  Company Number: US-ASTRAZENECA-2008UW21841

PATIENT
  Age: 12 Year
  Sex: Male

DRUGS (3)
  1. PULMICORT FLEXHALER [Suspect]
     Route: 055
     Dates: start: 20080901
  2. CEFUROXIME [Concomitant]
  3. METHYLPREDNISOLONE [Concomitant]

REACTIONS (5)
  - GAIT DISTURBANCE [None]
  - HEADACHE [None]
  - MUSCULAR WEAKNESS [None]
  - VOMITING [None]
  - WEIGHT DECREASED [None]
